FAERS Safety Report 14240801 (Version 9)
Quarter: 2018Q4

REPORT INFORMATION
  Report Type: Report from Study
  Country: US (occurrence: US)
  Receive Date: 20171130
  Receipt Date: 20181231
  Transmission Date: 20190204
  Serious: Yes (Other)
  Sender: FDA-Public Use
  Company Number: US-MALLINCKRODT-T201704121

PATIENT
  Age: 45 Year
  Sex: Male

DRUGS (7)
  1. REPOSITORY CORTICOTROPIN INJECTION [Suspect]
     Active Substance: CORTICOTROPIN
     Indication: NEPHROTIC SYNDROME
     Dosage: 3 X WEEKLY (24 UNITS ON MONDAYS/WEDNESDAYS AND 32 UNITS ON FRIDAYS)
     Route: 030
  2. MAGNESIUM [Suspect]
     Active Substance: MAGNESIUM
     Indication: EMOTIONAL DISTRESS
     Dosage: UNK
     Route: 065
  3. REPOSITORY CORTICOTROPIN INJECTION [Suspect]
     Active Substance: CORTICOTROPIN
     Indication: IGA NEPHROPATHY
     Dosage: 40 UNITS/.5 ML, 2 TIMES PER WEEK (MONDAY/FRIDAY)
     Route: 030
     Dates: start: 20170929
  4. REPOSITORY CORTICOTROPIN INJECTION [Suspect]
     Active Substance: CORTICOTROPIN
     Indication: PROTEINURIA
     Dosage: 40 UNITS/.5 ML, 2 TIMES PER WEEK (MONDAY/FRIDAY)
     Route: 030
  5. REPOSITORY CORTICOTROPIN INJECTION [Suspect]
     Active Substance: CORTICOTROPIN
     Dosage: 24 UNITS MONDAY/WEDNESDAY, 32 UNITS FRIDAY 3 X WEEKLY
     Route: 030
     Dates: end: 201803
  6. CELLCEPT [Concomitant]
     Active Substance: MYCOPHENOLATE MOFETIL\MYCOPHENOLATE MOFETIL HYDROCHLORIDE
     Indication: PRODUCT USED FOR UNKNOWN INDICATION
     Dosage: UNK
     Route: 065
  7. LASIX [Suspect]
     Active Substance: FUROSEMIDE
     Indication: FLUID RETENTION
     Dosage: UNKNOWN
     Route: 065

REACTIONS (18)
  - Gastroenteritis viral [Unknown]
  - Emotional distress [Unknown]
  - Injection site pain [Not Recovered/Not Resolved]
  - Muscle injury [Unknown]
  - Fluid retention [Unknown]
  - Drug ineffective [Unknown]
  - Blood glucose increased [Unknown]
  - Hypertension [Not Recovered/Not Resolved]
  - Hypersensitivity [Unknown]
  - Contusion [Unknown]
  - Influenza [Unknown]
  - IgA nephropathy [Unknown]
  - Condition aggravated [Unknown]
  - Bronchitis [Unknown]
  - Dyspnoea [Unknown]
  - Injection site haemorrhage [Unknown]
  - Treatment noncompliance [Unknown]
  - Muscle spasms [Unknown]

NARRATIVE: CASE EVENT DATE: 20171013
